FAERS Safety Report 4460482-6 (Version None)
Quarter: 2004Q3

REPORT INFORMATION
  Report Type: 
  Country: None (occurrence: None)
  Receive Date: 20040923
  Receipt Date: 20040914
  Transmission Date: 20050211
  Serious: Yes (Death)
  Sender: FDA-Public Use
  Company Number: 2004US001112

PATIENT
  Age: 44 Year
  Sex: Male

DRUGS (1)
  1. PROGRAF [Suspect]

REACTIONS (3)
  - SUDDEN DEATH [None]
  - TRANSPLANT REJECTION [None]
  - TREATMENT NONCOMPLIANCE [None]
